FAERS Safety Report 22203514 (Version 1)
Quarter: 2023Q2

REPORT INFORMATION
  Report Type: Spontaneous
  Country: None (occurrence: US)
  Receive Date: 20230412
  Receipt Date: 20230412
  Transmission Date: 20230721
  Serious: No
  Sender: FDA-Public Use
  Company Number: US-P+L Developments of Newyork Corporation-2140217

PATIENT
  Sex: Female

DRUGS (2)
  1. DOCOSANOL [Suspect]
     Active Substance: DOCOSANOL
     Indication: Oral herpes
     Route: 065
     Dates: start: 20230220, end: 20230226
  2. DOCOSANOL [Suspect]
     Active Substance: DOCOSANOL
     Route: 065
     Dates: start: 20230220, end: 20230226

REACTIONS (2)
  - Drug ineffective [Recovered/Resolved]
  - Product physical consistency issue [Unknown]

NARRATIVE: CASE EVENT DATE: 20230222
